FAERS Safety Report 10049811 (Version 3)
Quarter: 2015Q3

REPORT INFORMATION
  Report Type: Report from Study
  Country: DE (occurrence: DE)
  Receive Date: 20140401
  Receipt Date: 20150924
  Transmission Date: 20151125
  Serious: Yes (Other)
  Sender: FDA-Public Use
  Company Number: DE-BEH-2014041457

PATIENT
  Age: 26 Year
  Sex: Female
  Weight: 59 kg

DRUGS (4)
  1. PRIVIGEN [Suspect]
     Active Substance: HUMAN IMMUNOGLOBULIN G
     Indication: COMBINED IMMUNODEFICIENCY
     Dosage: 30 G IN TOTAL OF BOTH BATCH NUMBERS; INFUSION RATE MIN. 0.8 ML/MIN, MAX. 4 ML/MIN
     Route: 042
     Dates: start: 20100917, end: 20100917
  2. PRIVIGEN [Suspect]
     Active Substance: HUMAN IMMUNOGLOBULIN G
     Indication: ABORTION
     Dosage: 30 G IN TOTAL OF BOTH BATCH NUMBERS; INFUSION RATE MIN. 0.8 ML/MIN, MAX. 4 ML/MIN
     Route: 042
     Dates: start: 20100917, end: 20100917
  3. HAEMATE [Suspect]
     Active Substance: ANTIHEMOPHILIC FACTOR HUMAN
     Indication: PREMEDICATION
     Route: 042
     Dates: start: 20100917, end: 20100917
  4. HAEMATE [Suspect]
     Active Substance: ANTIHEMOPHILIC FACTOR HUMAN
     Indication: VON WILLEBRAND^S DISEASE
     Route: 042
     Dates: start: 20100917, end: 20100917

REACTIONS (4)
  - Exposure during pregnancy [Unknown]
  - Nasopharyngitis [Recovered/Resolved]
  - Vaginal haemorrhage [Unknown]
  - Abortion spontaneous [Unknown]

NARRATIVE: CASE EVENT DATE: 20100919
